FAERS Safety Report 22343835 (Version 1)
Quarter: 2023Q2

REPORT INFORMATION
  Report Type: Spontaneous
  Country: JP (occurrence: JP)
  Receive Date: 20230519
  Receipt Date: 20230519
  Transmission Date: 20230722
  Serious: Yes (Hospitalization, Other)
  Sender: FDA-Public Use
  Company Number: JP-MLMSERVICE-20230504-4271811-1

PATIENT
  Age: 73 Year
  Sex: Male

DRUGS (14)
  1. ETOPOSIDE [Suspect]
     Active Substance: ETOPOSIDE
     Indication: Angiocentric lymphoma
     Dosage: ON DAY 2-4
     Dates: start: 2022, end: 2022
  2. METHOTREXATE [Suspect]
     Active Substance: METHOTREXATE
     Indication: Angiocentric lymphoma
     Dosage: 1 G/M2?ON DAY 1
     Dates: start: 2022, end: 2022
  3. IFOSFAMIDE [Suspect]
     Active Substance: IFOSFAMIDE
     Indication: Angiocentric lymphoma
     Dosage: ON DAY 2-4
     Dates: start: 2022, end: 2022
  4. DEXAMETHASONE [Suspect]
     Active Substance: DEXAMETHASONE
     Indication: Angiocentric lymphoma
     Dosage: ON DAY 2-4, 40 MG/BODY
     Dates: start: 2022, end: 2022
  5. ASPARAGINASE [Suspect]
     Active Substance: ASPARAGINASE
     Indication: Angiocentric lymphoma
     Dosage: ON DAYS 8, 10, 12, 14, 16, 18, AND 20: 3000 U/M2
     Dates: start: 2022, end: 2022
  6. TOPIROXOSTAT [Concomitant]
     Active Substance: TOPIROXOSTAT
  7. LANSOPRAZOLE [Concomitant]
     Active Substance: LANSOPRAZOLE
  8. WARFARIN [Concomitant]
     Active Substance: WARFARIN
  9. NICORANDIL [Concomitant]
     Active Substance: NICORANDIL
  10. CLOPIDOGREL [Concomitant]
     Active Substance: CLOPIDOGREL BISULFATE
  11. CARVEDILOL [Concomitant]
     Active Substance: CARVEDILOL
  12. ROSUVASTATIN [Concomitant]
     Active Substance: ROSUVASTATIN
  13. ENALAPRIL [Concomitant]
     Active Substance: ENALAPRIL
  14. AMLODIPINE [Concomitant]
     Active Substance: AMLODIPINE BESYLATE

REACTIONS (4)
  - Gastric ulcer haemorrhage [Recovered/Resolved]
  - Renal failure [Unknown]
  - Decreased appetite [Unknown]
  - Drug clearance decreased [Unknown]

NARRATIVE: CASE EVENT DATE: 20220101
